FAERS Safety Report 14973893 (Version 2)
Quarter: 2018Q2

REPORT INFORMATION
  Report Type: Spontaneous
  Country: GB (occurrence: GB)
  Receive Date: 20180605
  Receipt Date: 20180614
  Transmission Date: 20180711
  Serious: Yes (Death, Hospitalization)
  Sender: FDA-Public Use
  Company Number: GB-TEVA-2018-GB-902249

PATIENT
  Age: 83 Year
  Sex: Male
  Weight: 107 kg

DRUGS (4)
  1. ATORVASTATIN [Concomitant]
     Active Substance: ATORVASTATIN
     Route: 065
  2. CALCIUM CARBONATE. [Concomitant]
     Active Substance: CALCIUM CARBONATE
     Route: 065
  3. FOLIC ACID. [Concomitant]
     Active Substance: FOLIC ACID
     Route: 065
  4. METFORMIN [Suspect]
     Active Substance: METFORMIN HYDROCHLORIDE
     Indication: TYPE 2 DIABETES MELLITUS
     Dosage: 500 MILLIGRAM DAILY;
     Route: 048
     Dates: start: 20150926, end: 20170926

REACTIONS (8)
  - Confusional state [Fatal]
  - Urosepsis [Fatal]
  - Purulent discharge [Fatal]
  - Pyrexia [Fatal]
  - Acute kidney injury [Fatal]
  - Device related infection [Fatal]
  - Lactic acidosis [Fatal]
  - Hypotension [Fatal]

NARRATIVE: CASE EVENT DATE: 20170926
